FAERS Safety Report 7685600-8 (Version None)
Quarter: 2011Q3

REPORT INFORMATION
  Report Type: 
  Country: None (occurrence: None)
  Receive Date: 20110816
  Receipt Date: 20110811
  Transmission Date: 20111222
  Serious: Yes (Other)
  Sender: FDA-Public Use
  Company Number: CA-PFIZER INC-2011177513

PATIENT
  Age: 62 Year
  Sex: Female

DRUGS (4)
  1. EZETIMIBE [Suspect]
     Indication: BLOOD CHOLESTEROL INCREASED
     Dosage: 10 MG, UNK
     Dates: start: 20110601, end: 20110101
  2. HYZAAR [Concomitant]
     Indication: HYPERTENSION
     Dosage: UNK
  3. LIPITOR [Suspect]
     Indication: BLOOD CHOLESTEROL INCREASED
     Dosage: 40 MG, 1X/DAY
     Route: 048
     Dates: start: 20000101, end: 20110601
  4. PRO-METFORMIN [Concomitant]
     Indication: GLUCOSE TOLERANCE IMPAIRED
     Dosage: 500 MG, UNK

REACTIONS (5)
  - BLOOD CHOLESTEROL INCREASED [None]
  - MYALGIA [None]
  - OEDEMA PERIPHERAL [None]
  - ABASIA [None]
  - ARTHRALGIA [None]
